FAERS Safety Report 7073872-2 (Version None)
Quarter: 2010Q4

REPORT INFORMATION
  Report Type: 
  Country: None (occurrence: None)
  Receive Date: 20101021
  Receipt Date: 20101015
  Transmission Date: 20110411
  Serious: Yes (Hospitalization, Other)
  Sender: FDA-Public Use
  Company Number: 2010SP028485

PATIENT
  Age: 20 Year
  Sex: Female
  Weight: 105.0077 kg

DRUGS (2)
  1. NUVARING [Suspect]
     Indication: CONTRACEPTION
     Dosage: VAG
     Route: 067
     Dates: end: 20080519
  2. ADVIL [Concomitant]

REACTIONS (8)
  - ASTHMA [None]
  - DEEP VEIN THROMBOSIS [None]
  - EAR INFECTION [None]
  - INJECTION SITE HAEMATOMA [None]
  - PYELONEPHRITIS [None]
  - THROMBOPHLEBITIS [None]
  - URINARY TRACT INFECTION [None]
  - WEIGHT DECREASED [None]
